FAERS Safety Report 7457079-2 (Version None)
Quarter: 2011Q2

REPORT INFORMATION
  Report Type: 
  Country: None (occurrence: None)
  Receive Date: 20110504
  Receipt Date: 20110420
  Transmission Date: 20111010
  Serious: No
  Sender: FDA-Public Use
  Company Number: US-JNJFOC-20110308460

PATIENT
  Sex: Female
  Weight: 70.31 kg

DRUGS (4)
  1. DURAGESIC [Suspect]
     Indication: ANALGESIC THERAPY
     Route: 062
  2. REGLAN [Concomitant]
     Indication: GASTRIC DISORDER
     Route: 048
  3. HYDROCODONE BITARTRATE [Concomitant]
     Indication: BREAKTHROUGH PAIN
     Route: 048
  4. PRISTIQ [Concomitant]
     Indication: DEPRESSION
     Route: 048

REACTIONS (1)
  - WRONG TECHNIQUE IN DRUG USAGE PROCESS [None]
